FAERS Safety Report 17770159 (Version 1)
Quarter: 2020Q2

REPORT INFORMATION
  Report Type: Spontaneous
  Country: US (occurrence: US)
  Receive Date: 20200512
  Receipt Date: 20200512
  Transmission Date: 20200714
  Serious: Yes (Other)
  Sender: FDA-Public Use
  Company Number: US-IPCA LABORATORIES LIMITED-IPC-2020-US-001362

PATIENT

DRUGS (3)
  1. HYDROXYCHLOROQUINE [Suspect]
     Active Substance: HYDROXYCHLOROQUINE
     Indication: ADJUVANT THERAPY
     Dosage: 600 MILLIGRAM, BID
     Route: 065
  2. HYDROXYCHLOROQUINE [Suspect]
     Active Substance: HYDROXYCHLOROQUINE
     Indication: IMMUNOSUPPRESSANT DRUG THERAPY
     Dosage: 1200 MILLIGRAM, QD
     Route: 065
  3. EVEROLIMUS. [Concomitant]
     Active Substance: EVEROLIMUS
     Indication: NEOPLASM
     Dosage: 10 MILLIGRAM, QD
     Route: 065

REACTIONS (5)
  - Punctate keratitis [Recovered/Resolved]
  - Astigmatism [Recovered/Resolved]
  - Corneal toxicity [Unknown]
  - Cornea verticillata [Recovered/Resolved]
  - Eyelid ptosis [Unknown]
